FAERS Safety Report 16225155 (Version 2)
Quarter: 2020Q2

REPORT INFORMATION
  Report Type: Report from Study
  Country: NL (occurrence: NL)
  Receive Date: 20190422
  Receipt Date: 20200518
  Transmission Date: 20200713
  Serious: Yes (Death)
  Sender: FDA-Public Use
  Company Number: NL-PFIZER INC-2019170928

PATIENT

DRUGS (2)
  1. DOCETAXEL. [Suspect]
     Active Substance: DOCETAXEL
     Indication: ADENOCARCINOMA GASTRIC
     Dosage: 75 MG/M2, (NORMOTHERMIC DOCETAXEL (90 MINUTES)
     Route: 033
  2. OXALIPLATIN. [Suspect]
     Active Substance: OXALIPLATIN
     Indication: ADENOCARCINOMA GASTRIC
     Dosage: 460 MG/M2, (HYPERTHERMIC OXALIPLATIN (30 MINUTES),FIXED DOSE
     Route: 033

REACTIONS (2)
  - Aspiration [Fatal]
  - Ileus [Fatal]
